FAERS Safety Report 24841138 (Version 4)
Quarter: 2025Q1

REPORT INFORMATION
  Report Type: Spontaneous
  Country: FR (occurrence: FR)
  Receive Date: 20250114
  Receipt Date: 20250205
  Transmission Date: 20250409
  Serious: Yes (Hospitalization, Other)
  Sender: MERCK
  Company Number: FR-009507513-2501FRA002989

PATIENT
  Age: 70 Year
  Sex: Female

DRUGS (6)
  1. SOTATERCEPT [Suspect]
     Active Substance: SOTATERCEPT
     Indication: Pulmonary arterial hypertension
     Dosage: 0.3 MILLIGRAM/KILOGRAM, Q3W
     Route: 058
     Dates: start: 20241106, end: 20241106
  2. SOTATERCEPT [Suspect]
     Active Substance: SOTATERCEPT
     Dosage: 0.7 MILLIGRAM/KILOGRAM, Q3W
     Route: 058
     Dates: start: 20241127, end: 20241127
  3. SOTATERCEPT [Suspect]
     Active Substance: SOTATERCEPT
     Dosage: 0.7 MILLIGRAM/KILOGRAM, Q3W
     Route: 058
     Dates: start: 20241218, end: 20241218
  4. SOTATERCEPT [Suspect]
     Active Substance: SOTATERCEPT
     Dosage: 0.7 MILLIGRAM/KILOGRAM, Q3W
     Route: 058
     Dates: start: 20250109, end: 20250109
  5. SOTATERCEPT [Suspect]
     Active Substance: SOTATERCEPT
     Dosage: 0.7 MILLIGRAM/KILOGRAM, Q3W
     Route: 058
     Dates: start: 20250129, end: 20250129
  6. METHIMAZOLE [Concomitant]
     Active Substance: METHIMAZOLE
     Indication: Hyperthyroidism

REACTIONS (9)
  - Septic shock [Unknown]
  - Post procedural complication [Unknown]
  - Intestinal obstruction [Unknown]
  - Hernia [Unknown]
  - Pulmonary hypertension [Unknown]
  - Pneumonia aspiration [Unknown]
  - Cerebrovascular accident [Unknown]
  - Hemiparesis [Unknown]
  - Inappropriate schedule of product administration [Unknown]

NARRATIVE: CASE EVENT DATE: 20250129
